FAERS Safety Report 7909472-9 (Version None)
Quarter: 2011Q4

REPORT INFORMATION
  Report Type: 
  Country: None (occurrence: None)
  Receive Date: 20111111
  Receipt Date: 20111107
  Transmission Date: 20120403
  Serious: Yes (Hospitalization)
  Sender: FDA-Public Use
  Company Number: US-BIOMARINP-002105

PATIENT
  Sex: Male

DRUGS (2)
  1. NAGLAZYME [Suspect]
     Route: 041
     Dates: start: 20050713, end: 20090528
  2. NAGLAZYME [Suspect]
     Indication: MUCOPOLYSACCHARIDOSIS VI
     Route: 041
     Dates: start: 20090603

REACTIONS (1)
  - PNEUMONIA [None]
